FAERS Safety Report 19479925 (Version 1)
Quarter: 2021Q2

REPORT INFORMATION
  Report Type: Report from Study
  Country: RO (occurrence: RO)
  Receive Date: 20210630
  Receipt Date: 20210630
  Transmission Date: 20210717
  Serious: Yes (Other)
  Sender: FDA-Public Use
  Company Number: RO-SEAGEN-2017SGN00569

PATIENT

DRUGS (1)
  1. BRENTUXIMAB VEDOTIN?MPI [Suspect]
     Active Substance: BRENTUXIMAB VEDOTIN
     Indication: HODGKIN^S DISEASE
     Dosage: 1.8 MG/KG, UNK
     Route: 042
     Dates: end: 201701

REACTIONS (4)
  - Pancytopenia [Unknown]
  - Alopecia [Unknown]
  - Polyneuropathy [Unknown]
  - Anaemia [Unknown]
